FAERS Safety Report 13233895 (Version 1)
Quarter: 2017Q1

REPORT INFORMATION
  Report Type: Spontaneous
  Country: US (occurrence: US)
  Receive Date: 20170214
  Receipt Date: 20170214
  Transmission Date: 20170428
  Serious: Yes (Hospitalization)
  Sender: FDA-Public Use
  Company Number: None

PATIENT
  Age: 10 Year
  Sex: Female

DRUGS (1)
  1. NEXAVAR [Suspect]
     Active Substance: SORAFENIB
     Indication: OSTEOSARCOMA
     Route: 048
     Dates: start: 20170106, end: 20170131

REACTIONS (5)
  - Cellulitis [None]
  - Pyrexia [None]
  - Vomiting [None]
  - Therapy cessation [None]
  - Nausea [None]

NARRATIVE: CASE EVENT DATE: 20170131
